FAERS Safety Report 4681587-0 (Version None)
Quarter: 2005Q2

REPORT INFORMATION
  Report Type: 
  Country: None (occurrence: None)
  Receive Date: 20050602
  Receipt Date: 20050523
  Transmission Date: 20051028
  Serious: Yes (Hospitalization)
  Sender: FDA-Public Use
  Company Number: 2005US000552

PATIENT
  Age: 11 Year
  Sex: Male

DRUGS (3)
  1. PROGRAF [Suspect]
     Indication: PROPHYLAXIS AGAINST TRANSPLANT REJECTION
     Dosage: 3.00 MG BID ORAL
     Route: 048
     Dates: start: 19990928, end: 20050505
  2. IMURAN [Suspect]
     Indication: PROPHYLAXIS AGAINST TRANSPLANT REJECTION
     Dosage: 75.00 G UID/QD ORAL
     Route: 048
     Dates: start: 19950924, end: 20050505
  3. FLOVENT [Concomitant]

REACTIONS (9)
  - DEHYDRATION [None]
  - DIARRHOEA [None]
  - DRUG LEVEL INCREASED [None]
  - MEDICATION ERROR [None]
  - MUSCLE SPASMS [None]
  - PANCREATITIS [None]
  - POOR QUALITY DRUG ADMINISTERED [None]
  - RENAL FAILURE [None]
  - VOMITING [None]
